FAERS Safety Report 4577100-9 (Version None)
Quarter: 2005Q1

REPORT INFORMATION
  Report Type: 
  Country: None (occurrence: None)
  Receive Date: 20050208
  Receipt Date: 20050125
  Transmission Date: 20050727
  Serious: Yes (Death)
  Sender: FDA-Public Use
  Company Number: 2004S1003599

PATIENT
  Age: 88 Year
  Sex: Female

DRUGS (9)
  1. CLOZAPINE [Suspect]
     Dosage: 100MG BID, ORAL
     Route: 048
     Dates: start: 20010801, end: 20041026
  2. TRIAMTERENE AND HYDROCHLOROTHIAZIDE [Concomitant]
  3. METFORMIN HCL [Concomitant]
  4. ACARBOSE [Concomitant]
  5. FOSINOPRIL [Concomitant]
  6. FLUOXETINE [Concomitant]
  7. ASPIRIN [Concomitant]
  8. INSULIN LISPRO [Concomitant]
  9. ATORVASTATIN [Concomitant]

REACTIONS (1)
  - DEATH [None]
